FAERS Safety Report 6435106-9 (Version None)
Quarter: 2009Q4

REPORT INFORMATION
  Report Type: 
  Country: None (occurrence: None)
  Receive Date: 20091110
  Receipt Date: 20091102
  Transmission Date: 20100525
  Serious: Yes (Death, Other)
  Sender: FDA-Public Use
  Company Number: US-ROCHE-666118

PATIENT

DRUGS (2)
  1. CEFTRIAXONE [Suspect]
     Route: 042
  2. METRONIDAZOLE [Suspect]
     Route: 042

REACTIONS (5)
  - ABDOMINAL INFECTION [None]
  - CANDIDA SEPSIS [None]
  - FUNGAL INFECTION [None]
  - MULTI-ORGAN FAILURE [None]
  - UNEVALUABLE EVENT [None]
